FAERS Safety Report 8391748 (Version 7)
Quarter: 2012Q4

REPORT INFORMATION
  Report Type: Report from Study
  Country: FR (occurrence: FR)
  Receive Date: 20120206
  Receipt Date: 20121009
  Transmission Date: 20130627
  Serious: Yes (Hospitalization)
  Sender: FDA-Public Use
  Company Number: FR-ROCHE-798949

PATIENT
  Age: 30 Year
  Sex: Male
  Weight: 27 kg

DRUGS (9)
  1. VISMODEGIB [Suspect]
     Indication: BASAL CELL CARCINOMA
     Dosage: LAST DOSE PRIOR TO SAE WAS 16 AUG 2011. TEMPORARILY INTERRUPTEDDOSAGE FORM UNKNOWN
     Route: 048
     Dates: start: 20110705, end: 20110802
  2. VISMODEGIB [Suspect]
     Dosage: permanently discontinued
     Route: 048
     Dates: start: 20110808, end: 20110816
  3. FLUOXETINE [Concomitant]
     Indication: DEPRESSION
     Route: 065
  4. TEGRETOL [Concomitant]
     Indication: EPILEPSY
     Route: 065
  5. HYDROCORTISONE [Concomitant]
     Indication: INFLAMMATION
     Route: 065
  6. TAHOR [Concomitant]
     Indication: HYPOCHOLESTEROLAEMIA
     Route: 065
  7. MINRIN [Concomitant]
     Indication: ENURESIS
     Route: 065
  8. UVEDOSE [Concomitant]
     Indication: VITAMIN D DEFICIENCY
     Route: 065
     Dates: start: 20110728
  9. LEVOTHYROX [Concomitant]
     Indication: HYPOTHYROIDISM
     Route: 065

REACTIONS (1)
  - Localised infection [Recovered/Resolved with Sequelae]
